FAERS Safety Report 8699538 (Version 2)
Quarter: 2013Q4

REPORT INFORMATION
  Report Type: Spontaneous
  Country: US (occurrence: US)
  Receive Date: 20120802
  Receipt Date: 20131031
  Transmission Date: 20140711
  Serious: Yes (Hospitalization, Other)
  Sender: FDA-Public Use
  Company Number: US-009507513-83100014

PATIENT
  Age: 21 Year
  Sex: Female
  Weight: 45.36 kg

DRUGS (2)
  1. CLINORIL [Suspect]
     Indication: NECK PAIN
     Dosage: 300 MG, BID
     Route: 048
     Dates: start: 198308, end: 198308
  2. MK-0130 [Concomitant]
     Indication: NECK PAIN
     Dosage: 30 MG, TID
     Route: 048
     Dates: start: 198308, end: 198308

REACTIONS (2)
  - General symptom [Recovered/Resolved]
  - Guillain-Barre syndrome [Unknown]
